FAERS Safety Report 5130978-2 (Version None)
Quarter: 2006Q3

REPORT INFORMATION
  Report Type: 
  Country: None (occurrence: None)
  Receive Date: 20060829
  Receipt Date: 20060724
  Transmission Date: 20061208
  Serious: Yes (Hospitalization)
  Sender: FDA-Public Use
  Company Number: PHEH2006US05145

PATIENT
  Age: 83 Year
  Sex: Female
  Weight: 54.9 kg

DRUGS (10)
  1. EXJADE [Suspect]
     Indication: BLOOD IRON INCREASED
     Dosage: 1250 MG, QD, ORAL
     Route: 048
     Dates: start: 20060316, end: 20060325
  2. COUMADIN [Concomitant]
  3. REVLIMID (LENALIDOMIDE) [Concomitant]
  4. TOPROL-XL [Concomitant]
  5. LANOXIN [Concomitant]
  6. CARDIZEM CD [Concomitant]
  7. GLIPIZIDE [Concomitant]
  8. METFORMIN HCL [Concomitant]
  9. PRILOSEC [Concomitant]
  10. LASIX [Concomitant]

REACTIONS (3)
  - DRUG ERUPTION [None]
  - RASH [None]
  - URTICARIA [None]
